FAERS Safety Report 6663224-9 (Version None)
Quarter: 2010Q2

REPORT INFORMATION
  Report Type: 
  Country: None (occurrence: None)
  Receive Date: 20100401
  Receipt Date: 20100401
  Transmission Date: 20101027
  Serious: Yes (Hospitalization)
  Sender: FDA-Public Use
  Company Number: PHHO2007HU10267

PATIENT
  Sex: Female
  Weight: 55 kg

DRUGS (5)
  1. ACLASTA/ZOLEDRONATE T29581+A+SOLINJ [Suspect]
     Indication: OSTEOPOROSIS POSTMENOPAUSAL
     Dosage: 5 MG ONCE A YEAR
     Route: 042
     Dates: start: 20051121
  2. CALCIUM [Concomitant]
     Indication: OSTEOPOROSIS POSTMENOPAUSAL
  3. VITAMIN D [Concomitant]
     Indication: OSTEOPOROSIS POSTMENOPAUSAL
  4. TALLITON [Concomitant]
     Indication: HYPERTENSION
     Dosage: 6 MG
     Route: 048
     Dates: start: 20040324
  5. SYNCUMAR [Concomitant]
     Indication: MYOCARDIAL ISCHAEMIA
     Dosage: 1 MG
     Route: 048
     Dates: start: 20040301

REACTIONS (3)
  - DIVERTICULUM [None]
  - GASTROENTERITIS RADIATION [None]
  - HAEMATOCHEZIA [None]
